FAERS Safety Report 23874564 (Version 1)
Quarter: 2024Q2

REPORT INFORMATION
  Report Type: Spontaneous
  Country: US (occurrence: US)
  Receive Date: 20240520
  Receipt Date: 20240520
  Transmission Date: 20240716
  Serious: No
  Sender: FDA-Public Use
  Company Number: US-PFIZER INC-202400171551

PATIENT
  Age: 47 Year
  Sex: Female

DRUGS (7)
  1. XELJANZ [Suspect]
     Active Substance: TOFACITINIB CITRATE
     Dosage: 5 MG, 2X/DAY
     Route: 048
     Dates: start: 202208
  2. TRULICITY [Concomitant]
     Active Substance: DULAGLUTIDE
     Dosage: TRULICITY 0.75MG/0.5 PEN INJCTR
  3. DULOXETINE HYDROCHLORIDE [Concomitant]
     Active Substance: DULOXETINE HYDROCHLORIDE
  4. LISINOPRIL [Concomitant]
     Active Substance: LISINOPRIL
  5. ESTROVEN COMPLETE MULTI SYMPTOM MENOPAUSE RELIEF [Concomitant]
  6. SULINDAC [Concomitant]
     Active Substance: SULINDAC
  7. PANTOPRAZOLE SODIUM [Concomitant]
     Active Substance: PANTOPRAZOLE SODIUM

REACTIONS (1)
  - Drug ineffective [Unknown]
